FAERS Safety Report 20471065 (Version 2)
Quarter: 2022Q1

REPORT INFORMATION
  Report Type: Spontaneous
  Country: US (occurrence: US)
  Receive Date: 20220214
  Receipt Date: 20220217
  Transmission Date: 20220423
  Serious: No
  Sender: FDA-Public Use
  Company Number: US-G1-000450

PATIENT
  Age: 70 Year
  Sex: Male

DRUGS (1)
  1. COSELA [Suspect]
     Active Substance: TRILACICLIB DIHYDROCHLORIDE
     Indication: Myelosuppression
     Dosage: 240 MG/M2, 1 TO 3 DAYS PRIOR TO THE START OF CHEMOTHERAPY
     Route: 041
     Dates: start: 20211108, end: 20220112

REACTIONS (2)
  - Neutrophil count decreased [Recovered/Resolved]
  - Drug ineffective [Unknown]

NARRATIVE: CASE EVENT DATE: 20211216
